FAERS Safety Report 13737405 (Version 1)
Quarter: 2017Q3

REPORT INFORMATION
  Report Type: Spontaneous
  Country: FR (occurrence: FR)
  Receive Date: 20170710
  Receipt Date: 20170710
  Transmission Date: 20171127
  Serious: Yes (Other)
  Sender: FDA-Public Use
  Company Number: FR-IPSEN BIOPHARMACEUTICALS, INC.-2017-06617

PATIENT
  Age: 50 Year
  Sex: Female

DRUGS (1)
  1. AZZALURE [Suspect]
     Active Substance: BOTULINUM TOXIN TYPE A
     Indication: SKIN WRINKLING
     Dosage: 50 UNITS
     Route: 030
     Dates: start: 20170504, end: 20170504

REACTIONS (4)
  - Product preparation error [Unknown]
  - Nerve injury [Unknown]
  - Injection site pain [Not Recovered/Not Resolved]
  - Drug dispensing error [Unknown]

NARRATIVE: CASE EVENT DATE: 201705
